FAERS Safety Report 7954521-5 (Version None)
Quarter: 2011Q4

REPORT INFORMATION
  Report Type: 
  Country: None (occurrence: None)
  Receive Date: 20111202
  Receipt Date: 20111122
  Transmission Date: 20120403
  Serious: Yes (Other)
  Sender: FDA-Public Use
  Company Number: PHFR2011GB04945

PATIENT
  Sex: Male

DRUGS (6)
  1. LANSOPRAZOLE [Concomitant]
     Dosage: 30 MG
     Route: 048
  2. PROPRANOLOL [Concomitant]
     Dosage: 20 MG, BID
     Route: 048
  3. PIRENZEPINE [Concomitant]
     Dosage: 150 MG
     Route: 048
  4. CLOZARIL [Suspect]
     Indication: SCHIZOPHRENIA
     Dosage: 500 MG
     Route: 048
     Dates: start: 20110512
  5. CLONAZEPAM [Concomitant]
     Dosage: 0.25 MG, BID
     Route: 048
  6. LORIDINE [Concomitant]
     Dosage: 10 MG
     Route: 048

REACTIONS (1)
  - HIDRADENITIS [None]
